FAERS Safety Report 6067530-0 (Version None)
Quarter: 2009Q1

REPORT INFORMATION
  Report Type: 
  Country: None (occurrence: None)
  Receive Date: 20090205
  Receipt Date: 20090124
  Transmission Date: 20090719
  Serious: Yes (Disabling, Other)
  Sender: FDA-Public Use
  Company Number: MX-PFIZER INC-2009161029

PATIENT

DRUGS (1)
  1. CHAMPIX [Suspect]
     Indication: SMOKING CESSATION THERAPY
     Dosage: UNIT DOSE: UNK; FREQUENCY: UNK, UNK;
     Route: 048
     Dates: start: 20070601, end: 20070901

REACTIONS (5)
  - ASTHENIA [None]
  - DEPRESSION [None]
  - HYPOTHYROIDISM [None]
  - ILL-DEFINED DISORDER [None]
  - WEIGHT INCREASED [None]
